FAERS Safety Report 5693160-6 (Version None)
Quarter: 2008Q2

REPORT INFORMATION
  Report Type: 
  Country: None (occurrence: None)
  Receive Date: 20080402
  Receipt Date: 20080402
  Transmission Date: 20081010
  Serious: Yes (Life-Threatening, Hospitalization, Other)
  Sender: FDA-Public Use
  Company Number: None

PATIENT
  Age: 51 Year
  Sex: Female
  Weight: 63.5036 kg

DRUGS (1)
  1. PREDNISONE TAB [Suspect]
     Indication: LUNG INFECTION
     Dosage: 20 MG 3X 5 DAYS 2X 3 DAYS 1X 2 DAYS
     Dates: start: 20080311, end: 20080319

REACTIONS (12)
  - CHILLS [None]
  - CONFUSIONAL STATE [None]
  - DEPRESSION [None]
  - HOMICIDAL IDEATION [None]
  - HYPERACUSIS [None]
  - HYPERHIDROSIS [None]
  - MENTAL IMPAIRMENT [None]
  - PAROSMIA [None]
  - PHOTOPHOBIA [None]
  - SUICIDAL IDEATION [None]
  - TREMOR [None]
  - VIOLENCE-RELATED SYMPTOM [None]
